FAERS Safety Report 11740538 (Version 2)
Quarter: 2015Q4

REPORT INFORMATION
  Report Type: Spontaneous
  Country: US (occurrence: US)
  Receive Date: 20151110
  Receipt Date: 20151120
  Transmission Date: 20160304
  Serious: No
  Sender: FDA-Public Use
  Company Number: US-ELI_LILLY_AND_COMPANY-US201112001688

PATIENT
  Sex: Female

DRUGS (2)
  1. FORTEO [Suspect]
     Active Substance: TERIPARATIDE
     Indication: OSTEOPOROSIS
     Dosage: 20 UG, QD
     Route: 065
     Dates: start: 201106
  2. FORTEO [Suspect]
     Active Substance: TERIPARATIDE
     Dosage: 20 UG, QD
     Route: 065

REACTIONS (10)
  - Asthenia [Recovering/Resolving]
  - Pain in extremity [Unknown]
  - Lethargy [Recovering/Resolving]
  - Dysgraphia [Recovering/Resolving]
  - Arthropathy [Unknown]
  - Headache [Unknown]
  - Balance disorder [Not Recovered/Not Resolved]
  - Memory impairment [Recovering/Resolving]
  - General symptom [Recovering/Resolving]
  - Feeling abnormal [Recovering/Resolving]
